FAERS Safety Report 8301365-0 (Version None)
Quarter: 2012Q2

REPORT INFORMATION
  Report Type: 
  Country: None (occurrence: None)
  Receive Date: 20120420
  Receipt Date: 20120411
  Transmission Date: 20120825
  Serious: Yes (Hospitalization)
  Sender: FDA-Public Use
  Company Number: US-ABBOTT-12P-163-0924746-00

PATIENT
  Sex: Female
  Weight: 81.72 kg

DRUGS (17)
  1. IRON [Concomitant]
     Indication: PRODUCT USED FOR UNKNOWN INDICATION
  2. ENTOCORT EC [Concomitant]
     Indication: PRODUCT USED FOR UNKNOWN INDICATION
     Dosage: 2 TABLETS IN AM 1 AT BEDTIME
  3. NEOPLEX [Concomitant]
     Indication: RESTLESS LEGS SYNDROME
     Dosage: AT BEDTIME
  4. PREDNISONE TAB [Concomitant]
     Indication: PRODUCT USED FOR UNKNOWN INDICATION
  5. CIPROFLOXACIN HCL [Concomitant]
     Indication: COLITIS ULCERATIVE
  6. CALCIUM [Concomitant]
     Indication: PRODUCT USED FOR UNKNOWN INDICATION
  7. HUMIRA [Suspect]
     Indication: CROHN'S DISEASE
  8. HUMIRA [Suspect]
  9. VIT C [Concomitant]
     Indication: PRODUCT USED FOR UNKNOWN INDICATION
  10. VITAMIN D [Concomitant]
     Indication: PRODUCT USED FOR UNKNOWN INDICATION
  11. BONIVA [Concomitant]
     Indication: PRODUCT USED FOR UNKNOWN INDICATION
  12. AMITRIPTYLINE HCL [Concomitant]
     Indication: INSOMNIA
  13. FLAGYL [Concomitant]
     Indication: PRODUCT USED FOR UNKNOWN INDICATION
     Dosage: 3/DAY
  14. HUMIRA [Suspect]
     Dosage: SECOND DOSE WHILE IN HOSPITAL
  15. CELEXA [Concomitant]
     Indication: PRODUCT USED FOR UNKNOWN INDICATION
  16. LEVOXYL [Concomitant]
     Indication: PRODUCT USED FOR UNKNOWN INDICATION
  17. AMITRIPTYLINE HCL [Concomitant]
     Indication: GASTRIC DISORDER

REACTIONS (3)
  - PULMONARY EMBOLISM [None]
  - POUCHITIS [None]
  - THROMBOSIS [None]
